FAERS Safety Report 12983251 (Version 1)
Quarter: 2016Q4

REPORT INFORMATION
  Report Type: Spontaneous
  Country: US (occurrence: US)
  Receive Date: 20161129
  Receipt Date: 20161129
  Transmission Date: 20170207
  Serious: Yes (Other)
  Sender: FDA-Public Use
  Company Number: PHEH2016US030835

PATIENT
  Sex: Female
  Weight: 97.51 kg

DRUGS (4)
  1. PAZOPANIB [Suspect]
     Active Substance: PAZOPANIB
     Indication: BENIGN RENAL NEOPLASM
     Dosage: 400 MG, QD
     Route: 065
     Dates: start: 20130126, end: 20140110
  2. XGEVA [Suspect]
     Active Substance: DENOSUMAB
     Indication: BENIGN RENAL NEOPLASM
     Dosage: UNK
     Route: 065
     Dates: start: 20130522, end: 20131009
  3. PAZOPANIB [Suspect]
     Active Substance: PAZOPANIB
     Dosage: 400 MG, QD
     Route: 048
     Dates: start: 20140319, end: 20140607
  4. PAZOPANIB [Suspect]
     Active Substance: PAZOPANIB
     Dosage: 400 MG QD
     Route: 048
     Dates: start: 20140707, end: 20141023

REACTIONS (7)
  - Endometrial cancer [Unknown]
  - Metastases to bone [Unknown]
  - Malignant neoplasm progression [Unknown]
  - Hypophosphataemia [Unknown]
  - Postmenopausal haemorrhage [Unknown]
  - Second primary malignancy [Unknown]
  - Pathological fracture [Unknown]
